FAERS Safety Report 15633103 (Version 1)
Quarter: 2018Q4

REPORT INFORMATION
  Report Type: Spontaneous
  Country: US (occurrence: US)
  Receive Date: 20181119
  Receipt Date: 20181119
  Transmission Date: 20190205
  Serious: Yes (Other)
  Sender: FDA-Public Use
  Company Number: US-SA-2018SA315980

PATIENT
  Age: 65 Year
  Sex: Male

DRUGS (1)
  1. PRALUENT [Suspect]
     Active Substance: ALIROCUMAB
     Indication: PROPHYLAXIS
     Dosage: 75 MG, QOW
     Route: 058
     Dates: start: 201810

REACTIONS (2)
  - Implantable defibrillator insertion [Unknown]
  - Hernia repair [Unknown]

NARRATIVE: CASE EVENT DATE: 20181008
